FAERS Safety Report 6048526-1 (Version None)
Quarter: 2009Q1

REPORT INFORMATION
  Report Type: 
  Country: None (occurrence: None)
  Receive Date: 20090123
  Receipt Date: 20090119
  Transmission Date: 20090719
  Serious: Yes (Other)
  Sender: FDA-Public Use
  Company Number: FR-BRISTOL-MYERS SQUIBB COMPANY-14475644

PATIENT
  Age: 28 Year
  Sex: Female

DRUGS (3)
  1. ORENCIA [Suspect]
     Indication: RHEUMATOID ARTHRITIS
     Dosage: SECOND INFUSION ON 13-NOV-2008 AND THIRD INFUSION ON 28-NOV-2008
     Dates: start: 20081030
  2. RITUXIMAB [Suspect]
     Dates: end: 20080701
  3. METHOTREXATE [Concomitant]

REACTIONS (2)
  - AGRANULOCYTOSIS [None]
  - GINGIVITIS [None]
